FAERS Safety Report 17952860 (Version 1)
Quarter: 2020Q2

REPORT INFORMATION
  Report Type: Other
  Country: CA (occurrence: CA)
  Receive Date: 20200627
  Receipt Date: 20200627
  Transmission Date: 20200714
  Serious: Yes (Disabling, Other)
  Sender: FDA-Public Use
  Company Number: CA-ACCORD-187036

PATIENT
  Age: 15 Month

DRUGS (4)
  1. CICLOSPORIN [Suspect]
     Active Substance: CYCLOSPORINE
     Indication: PRODUCT USED FOR UNKNOWN INDICATION
     Dosage: NOT SPECIFIED
     Route: 065
  2. CARBOPLATIN. [Suspect]
     Active Substance: CARBOPLATIN
     Indication: RETINOBLASTOMA
  3. TENIPOSIDE. [Suspect]
     Active Substance: TENIPOSIDE
     Indication: RETINOBLASTOMA
     Route: 065
  4. VINCRISTINE [Suspect]
     Active Substance: VINCRISTINE
     Indication: RETINOBLASTOMA
     Dosage: NOT SPECIFIED
     Route: 065

REACTIONS (4)
  - Ototoxicity [Unknown]
  - Deafness [Unknown]
  - Off label use [Unknown]
  - Drug resistance [Unknown]
